FAERS Safety Report 9310311 (Version 1)
Quarter: 2013Q2

REPORT INFORMATION
  Report Type: Spontaneous
  Country: US (occurrence: US)
  Receive Date: 20130527
  Receipt Date: 20130527
  Transmission Date: 20140414
  Serious: Yes (Other)
  Sender: FDA-Public Use
  Company Number: US-PFIZER INC-2013161070

PATIENT
  Age: 55 Year
  Sex: Male
  Weight: 81.63 kg

DRUGS (1)
  1. LYRICA [Suspect]
     Indication: NERVE COMPRESSION
     Dosage: 50 MG, 2X/DAY
     Route: 048
     Dates: start: 20130412, end: 20130524

REACTIONS (12)
  - Activities of daily living impaired [Unknown]
  - Disturbance in attention [Unknown]
  - Gait disturbance [Unknown]
  - Dizziness [Unknown]
  - Dry mouth [Unknown]
  - Insomnia [Unknown]
  - Somnolence [Unknown]
  - Abnormal dreams [Unknown]
  - Movement disorder [Unknown]
  - Product taste abnormal [Unknown]
  - Decreased appetite [Unknown]
  - Pain [Not Recovered/Not Resolved]
